FAERS Safety Report 5066451-X (Version None)
Quarter: 2006Q3

REPORT INFORMATION
  Report Type: 
  Country: None (occurrence: None)
  Receive Date: 20060717
  Receipt Date: 20051102
  Transmission Date: 20061208
  Serious: Yes (Life-Threatening, Hospitalization)
  Sender: FDA-Public Use
  Company Number: SGB1-2005-00498

PATIENT
  Age: 47 Year
  Sex: Female

DRUGS (8)
  1. ANAGRELIDE HCL [Suspect]
     Indication: ESSENTIAL THROMBOCYTHAEMIA
     Dosage: 0.5 MG, EVERY OTHER DAY, ORAL - SEE IMAGE
     Route: 048
     Dates: start: 20050701, end: 20050801
  2. ANAGRELIDE HCL [Suspect]
     Indication: ESSENTIAL THROMBOCYTHAEMIA
     Dosage: 0.5 MG, EVERY OTHER DAY, ORAL - SEE IMAGE
     Route: 048
     Dates: start: 20050501
  3. ANAGRELIDE HCL [Suspect]
     Indication: ESSENTIAL THROMBOCYTHAEMIA
     Dosage: 0.5 MG, EVERY OTHER DAY, ORAL - SEE IMAGE
     Route: 048
     Dates: start: 20050601
  4. ACETYLSALICYLSAEURE (ACETYLSALICYLIC ACID) [Concomitant]
  5. CLOPIDOGREL [Concomitant]
  6. ATORVASTATIN CALCIUM [Concomitant]
  7. BISOPROLOL FUMARATE [Concomitant]
  8. HEPARIN [Concomitant]

REACTIONS (1)
  - ACUTE MYOCARDIAL INFARCTION [None]
